FAERS Safety Report 24333324 (Version 2)
Quarter: 2024Q4

REPORT INFORMATION
  Report Type: Spontaneous
  Country: US (occurrence: US)
  Receive Date: 20240918
  Receipt Date: 20241209
  Transmission Date: 20250115
  Serious: No
  Sender: Kenvue
  Company Number: US-JNJFOC-20240923644

PATIENT
  Age: 92 Year
  Sex: Female

DRUGS (1)
  1. WOMENS ROGAINE UNSCENTED [Suspect]
     Active Substance: MINOXIDIL
     Indication: Madarosis
     Dosage: MAYBE A DIME SIZE
     Route: 061
     Dates: start: 202407

REACTIONS (4)
  - Product administered at inappropriate site [Unknown]
  - Therapeutic response unexpected [Unknown]
  - Product use in unapproved indication [Unknown]
  - Product container issue [Unknown]

NARRATIVE: CASE EVENT DATE: 20240701
